FAERS Safety Report 8386900-9 (Version None)
Quarter: 2012Q2

REPORT INFORMATION
  Report Type: 
  Country: None (occurrence: None)
  Receive Date: 20120525
  Receipt Date: 20120514
  Transmission Date: 20120825
  Serious: Yes (Other)
  Sender: FDA-Public Use
  Company Number: CH-JNJFOC-20120400914

PATIENT
  Age: 54 Year
  Sex: Female

DRUGS (3)
  1. SIMPONI [Suspect]
     Route: 058
     Dates: start: 20120120
  2. SIMPONI [Suspect]
     Indication: RHEUMATOID ARTHRITIS
     Route: 058
  3. ARAVA [Concomitant]
     Indication: RHEUMATOID ARTHRITIS

REACTIONS (1)
  - PLEURAL EFFUSION [None]
